FAERS Safety Report 17042883 (Version 1)
Quarter: 2019Q4

REPORT INFORMATION
  Report Type: Spontaneous
  Country: US (occurrence: US)
  Receive Date: 20191017
  Receipt Date: 20191017
  Transmission Date: 20200122
  Serious: Yes (Life-Threatening)
  Sender: FDA-Public Use
  Company Number: None

PATIENT
  Age: 45 Year
  Sex: Male
  Weight: 105.69 kg

DRUGS (1)
  1. LEVETIRACETAM 1000MG [Suspect]
     Active Substance: LEVETIRACETAM

REACTIONS (2)
  - Epilepsy [None]
  - Product substitution issue [None]
